FAERS Safety Report 11731494 (Version 1)
Quarter: 2015Q4

REPORT INFORMATION
  Report Type: Spontaneous
  Country: SE (occurrence: SE)
  Receive Date: 20151112
  Receipt Date: 20151112
  Transmission Date: 20160304
  Serious: Yes (Other)
  Sender: FDA-Public Use
  Company Number: SE-ROCHE-1659930

PATIENT
  Age: 61 Year
  Sex: Female

DRUGS (7)
  1. CALCICHEW D3 FORTE [Concomitant]
     Active Substance: CALCIUM\CHOLECALCIFEROL
     Route: 065
  2. AVASTIN [Suspect]
     Active Substance: BEVACIZUMAB
     Indication: LUNG NEOPLASM MALIGNANT
     Dosage: RECEIVED MOST RECENT DOSE ON 20/OCT/2015
     Route: 042
     Dates: start: 20150707
  3. DICLOFENAC [Concomitant]
     Active Substance: DICLOFENAC
     Dosage: AS REQUIRED
     Route: 065
  4. OXYNORM [Concomitant]
     Active Substance: OXYCODONE HYDROCHLORIDE
     Dosage: AS REQUIRED
     Route: 065
  5. ALVEDON [Concomitant]
     Active Substance: ACETAMINOPHEN
     Dosage: AS REQUIRED
     Route: 065
  6. XGEVA [Concomitant]
     Active Substance: DENOSUMAB
     Route: 065
  7. MONOPROST [Concomitant]
     Active Substance: LATANOPROST
     Route: 065

REACTIONS (1)
  - Raynaud^s phenomenon [Not Recovered/Not Resolved]

NARRATIVE: CASE EVENT DATE: 20151019
